FAERS Safety Report 17727949 (Version 1)
Quarter: 2020Q2

REPORT INFORMATION
  Report Type: Spontaneous
  Country: US (occurrence: US)
  Receive Date: 20200429
  Receipt Date: 20200429
  Transmission Date: 20200714
  Serious: No
  Sender: FDA-Public Use
  Company Number: None

PATIENT
  Age: 79 Year
  Sex: Female
  Weight: 68.04 kg

DRUGS (1)
  1. DUPIXENT [Suspect]
     Active Substance: DUPILUMAB
     Indication: NASAL POLYPS
     Dates: start: 20200114, end: 20200310

REACTIONS (5)
  - Rhinorrhoea [None]
  - Sneezing [None]
  - Salivary gland enlargement [None]
  - Feeling abnormal [None]
  - Facial pain [None]

NARRATIVE: CASE EVENT DATE: 20200114
